FAERS Safety Report 6584296-6 (Version None)
Quarter: 2010Q1

REPORT INFORMATION
  Report Type: 
  Country: None (occurrence: None)
  Receive Date: 20100216
  Receipt Date: 20100210
  Transmission Date: 20100710
  Serious: No
  Sender: FDA-Public Use
  Company Number: US-ABBOTT-10P-163-0625507-00

PATIENT
  Sex: Female

DRUGS (1)
  1. SIMCOR [Suspect]
     Indication: BLOOD CHOLESTEROL INCREASED
     Dosage: 500MG/200MG AT BEDTIME
     Dates: start: 20100101

REACTIONS (3)
  - DIARRHOEA [None]
  - FOOD POISONING [None]
  - MUSCLE SPASMS [None]
